FAERS Safety Report 21593370 (Version 1)
Quarter: 2022Q4

REPORT INFORMATION
  Report Type: Report from Study
  Country: US (occurrence: US)
  Receive Date: 20221114
  Receipt Date: 20221114
  Transmission Date: 20230113
  Serious: Yes (Hospitalization)
  Sender: FDA-Public Use
  Company Number: US-ABBVIE-4199085

PATIENT
  Age: 69 Year
  Sex: Female

DRUGS (1)
  1. HUMIRA [Suspect]
     Active Substance: ADALIMUMAB
     Indication: Rheumatoid arthritis
     Dosage: CITRATE FREE?LAST ADMINISTRATION DATE WAS 2022.
     Route: 058

REACTIONS (5)
  - Pulmonary embolism [Unknown]
  - Drug ineffective [Not Recovered/Not Resolved]
  - Pneumonia bacterial [Unknown]
  - COVID-19 [Recovering/Resolving]
  - Pneumonia viral [Unknown]

NARRATIVE: CASE EVENT DATE: 20220722
